FAERS Safety Report 19653926 (Version 2)
Quarter: 2021Q4

REPORT INFORMATION
  Report Type: Spontaneous
  Country: CZ (occurrence: CZ)
  Receive Date: 20210803
  Receipt Date: 20211008
  Transmission Date: 20220303
  Serious: Yes (Other)
  Sender: FDA-Public Use
  Company Number: CZ-ALLERGAN-2127220US

PATIENT
  Sex: Male
  Weight: 1.45 kg

DRUGS (2)
  1. LEVONORGESTREL [Suspect]
     Active Substance: LEVONORGESTREL
     Indication: Exposure during pregnancy
     Dosage: 52 MG, AT AN INITIAL RELEASE RATE OF 20 MICROGRAM PER 24 HOURS
     Route: 064
     Dates: end: 20200915
  2. STACYL [Concomitant]
     Indication: Exposure during pregnancy
     Dosage: 100 MG, QHS
     Route: 064

REACTIONS (4)
  - Foetal growth restriction [Recovered/Resolved]
  - Foetal anaemia [Recovered/Resolved]
  - Premature baby [Unknown]
  - Foetal exposure during pregnancy [Unknown]

NARRATIVE: CASE EVENT DATE: 20200101
